FAERS Safety Report 4679322-5 (Version None)
Quarter: 2005Q2

REPORT INFORMATION
  Report Type: 
  Country: None (occurrence: None)
  Receive Date: 20050531
  Receipt Date: 20050517
  Transmission Date: 20051028
  Serious: Yes (Other)
  Sender: FDA-Public Use
  Company Number: HQWYE772218MAY05

PATIENT
  Age: 27 Year
  Sex: Male

DRUGS (3)
  1. ADVIL [Suspect]
     Dosage: 3600 MG
  2. DICLOFENAC (DICLOFENAC, ) [Suspect]
     Dosage: 1000 MG
  3. SPALT FUR DIE NACHT (ACETAMINOPHEN,) [Suspect]
     Dosage: 8000 MG

REACTIONS (3)
  - HEPATOCELLULAR DAMAGE [None]
  - MULTIPLE DRUG OVERDOSE [None]
  - RENAL FAILURE [None]
